FAERS Safety Report 7491294-7 (Version None)
Quarter: 2011Q2

REPORT INFORMATION
  Report Type: 
  Country: None (occurrence: None)
  Receive Date: 20110519
  Receipt Date: 20110512
  Transmission Date: 20111010
  Serious: Yes (Hospitalization)
  Sender: FDA-Public Use
  Company Number: B0710289A

PATIENT
  Age: 69 Year
  Sex: Female

DRUGS (6)
  1. L-DOPA [Concomitant]
     Route: 065
  2. SINEMET [Suspect]
     Route: 065
  3. REQUIP [Suspect]
     Indication: PARKINSON'S DISEASE
     Route: 065
     Dates: start: 20001201
  4. AZILECT [Suspect]
     Route: 065
  5. REQUIP [Suspect]
     Indication: PARKINSON'S DISEASE
     Dosage: 16MG PER DAY
     Route: 048
  6. MODOPAR [Suspect]
     Indication: PARKINSON'S DISEASE
     Dosage: 375MG PER DAY
     Route: 065

REACTIONS (3)
  - HYPERSEXUALITY [None]
  - HYPERTHECOSIS [None]
  - LIBIDO INCREASED [None]
